FAERS Safety Report 19690597 (Version 2)
Quarter: 2021Q3

REPORT INFORMATION
  Report Type: Spontaneous
  Country: CA (occurrence: CA)
  Receive Date: 20210812
  Receipt Date: 20210819
  Transmission Date: 20211014
  Serious: Yes (Hospitalization, Other)
  Sender: FDA-Public Use
  Company Number: CA-PFIZER INC-202101005287

PATIENT
  Age: 73 Year
  Sex: Female

DRUGS (3)
  1. DEPO?MEDROL [Suspect]
     Active Substance: METHYLPREDNISOLONE ACETATE
     Dosage: 40 MG IN THE RIGHT ARM
     Dates: start: 20210413
  2. DEPO?MEDROL [Suspect]
     Active Substance: METHYLPREDNISOLONE ACETATE
     Dosage: UNK
     Route: 030
  3. DEPO?MEDROL [Suspect]
     Active Substance: METHYLPREDNISOLONE ACETATE
     Dosage: 40 MG IN THE LEFT ARM
     Dates: start: 20210426

REACTIONS (8)
  - Seizure [Unknown]
  - Tremor [Unknown]
  - Mobility decreased [Unknown]
  - Muscular weakness [Unknown]
  - Spinal cord disorder [Unknown]
  - Erythema [Unknown]
  - Gait inability [Unknown]
  - Blood pressure decreased [Unknown]

NARRATIVE: CASE EVENT DATE: 20210413
